FAERS Safety Report 7974586-4 (Version None)
Quarter: 2011Q4

REPORT INFORMATION
  Report Type: 
  Country: None (occurrence: None)
  Receive Date: 20111213
  Receipt Date: 20111202
  Transmission Date: 20120403
  Serious: Yes (Hospitalization)
  Sender: FDA-Public Use
  Company Number: US-BAYER-2011-031187

PATIENT
  Age: 25 Year
  Sex: Female
  Weight: 63.492 kg

DRUGS (14)
  1. MOTRIN [Concomitant]
     Dosage: 800 MG, PRN
     Dates: start: 20080104
  2. IMITREX [Concomitant]
     Indication: MIGRAINE
     Dosage: 100 UNK, UNK
     Dates: start: 20080104
  3. YAZ [Suspect]
     Indication: PREMENSTRUAL SYNDROME
     Dosage: UNK
     Dates: start: 20070701, end: 20080301
  4. FLOVENT [Concomitant]
     Dosage: UNK
     Dates: start: 20000101, end: 20080101
  5. CLARINEX [Concomitant]
     Dosage: UNK
     Dates: start: 20040101, end: 20110101
  6. VICODIN [Concomitant]
     Dosage: UNK UNK, PRN
     Dates: start: 20080104
  7. IMITREX [Concomitant]
     Dosage: 20 MG, PRN
     Dates: start: 20080226
  8. FLEXERIL [Concomitant]
     Dosage: 10 MG, PRN
     Dates: start: 20080104
  9. YAZ [Suspect]
  10. ADVAIR DISKUS 100/50 [Concomitant]
     Dosage: UNK, QD
     Route: 055
     Dates: start: 20080226
  11. IBUPROFEN [Concomitant]
     Dosage: UNK
     Dates: start: 20010101
  12. RELPAX [Concomitant]
     Dosage: 40 MG, PRN
     Dates: start: 20080104
  13. CLARINEX [Concomitant]
     Dosage: 5 MG, QD
     Dates: start: 20080104
  14. ADVAIR DISKUS 100/50 [Concomitant]
     Dosage: UNK
     Dates: start: 20000101, end: 20080101

REACTIONS (5)
  - OEDEMA PERIPHERAL [None]
  - FEAR [None]
  - INJURY [None]
  - DEEP VEIN THROMBOSIS [None]
  - PAIN [None]
